FAERS Safety Report 24754570 (Version 4)
Quarter: 2025Q3

REPORT INFORMATION
  Report Type: Spontaneous
  Country: CA (occurrence: CA)
  Receive Date: 20241219
  Receipt Date: 20250808
  Transmission Date: 20251021
  Serious: Yes (Other)
  Sender: TEVA
  Company Number: CA-TEVA-VS-3274796

PATIENT
  Age: 43 Year
  Sex: Female

DRUGS (6)
  1. REPAGLINIDE [Interacting]
     Active Substance: REPAGLINIDE
     Indication: Cystic fibrosis related diabetes
     Dosage: 8-12MG
     Route: 065
     Dates: start: 202304
  2. REPAGLINIDE [Interacting]
     Active Substance: REPAGLINIDE
     Indication: Cystic fibrosis related diabetes
     Route: 065
     Dates: start: 20230428
  3. REPAGLINIDE [Interacting]
     Active Substance: REPAGLINIDE
     Indication: Cystic fibrosis related diabetes
     Dosage: 10-12MG
     Route: 065
     Dates: start: 202304
  4. REPAGLINIDE [Interacting]
     Active Substance: REPAGLINIDE
     Indication: Cystic fibrosis related diabetes
     Route: 065
     Dates: start: 202304
  5. REPAGLINIDE [Interacting]
     Active Substance: REPAGLINIDE
     Indication: Cystic fibrosis related diabetes
     Route: 065
  6. REPAGLINIDE [Interacting]
     Active Substance: REPAGLINIDE
     Indication: Cystic fibrosis related diabetes
     Route: 065

REACTIONS (2)
  - Hypertransaminasaemia [Recovered/Resolved]
  - Drug interaction [Unknown]

NARRATIVE: CASE EVENT DATE: 20230101
